FAERS Safety Report 15366749 (Version 4)
Quarter: 2019Q1

REPORT INFORMATION
  Report Type: Report from Study
  Country: JP (occurrence: JP)
  Receive Date: 20180910
  Receipt Date: 20190102
  Transmission Date: 20190417
  Serious: Yes (Death)
  Sender: FDA-Public Use
  Company Number: JP-UCBSA-2018012378

PATIENT
  Age: 17 Year
  Sex: Male

DRUGS (13)
  1. LACOSAMIDE. [Suspect]
     Active Substance: LACOSAMIDE
     Indication: PARTIAL SEIZURES WITH SECONDARY GENERALISATION
     Dosage: 150 MG, 2X/DAY (BID)
     Route: 048
     Dates: start: 20171026, end: 20171122
  2. LACOSAMIDE. [Suspect]
     Active Substance: LACOSAMIDE
     Dosage: 200 MG, 2X/DAY (BID)
     Route: 048
     Dates: start: 20171123, end: 20180826
  3. TEGRETOL [Suspect]
     Active Substance: CARBAMAZEPINE
     Indication: SIMPLE PARTIAL SEIZURES
     Dosage: 600 MG, ONCE DAILY (QD)
     Route: 048
     Dates: end: 20171222
  4. TEGRETOL [Suspect]
     Active Substance: CARBAMAZEPINE
     Dosage: 200 MG, ONCE DAILY (QD)
     Route: 048
     Dates: start: 20180118, end: 20180826
  5. FYCOMPA [Suspect]
     Active Substance: PERAMPANEL
     Indication: SIMPLE PARTIAL SEIZURES
     Dosage: 4 MG, ONCE DAILY (QD)
     Route: 048
     Dates: start: 20180408, end: 20180826
  6. LACOSAMIDE. [Suspect]
     Active Substance: LACOSAMIDE
     Indication: FOCAL DYSCOGNITIVE SEIZURES
     Dosage: 100 MG, 2X/DAY (BID)
     Route: 048
     Dates: start: 20170916, end: 20171025
  7. FYCOMPA [Suspect]
     Active Substance: PERAMPANEL
     Dosage: OVERDOSE
     Route: 048
     Dates: start: 20180827, end: 20180827
  8. LAMICTAL [Suspect]
     Active Substance: LAMOTRIGINE
     Dosage: OVERDOSE
     Route: 048
     Dates: start: 20180827, end: 20180827
  9. LACOSAMIDE. [Suspect]
     Active Substance: LACOSAMIDE
     Indication: SIMPLE PARTIAL SEIZURES
     Dosage: 50 MG, 2X/DAY (BID)
     Route: 048
     Dates: start: 20170902, end: 20170915
  10. LAMICTAL [Suspect]
     Active Substance: LAMOTRIGINE
     Dosage: 150 MG, 2X/DAY (BID)
     Route: 048
     Dates: start: 20170607, end: 20180826
  11. TEGRETOL [Suspect]
     Active Substance: CARBAMAZEPINE
     Dosage: OVERDOSE
     Route: 048
     Dates: start: 20180827, end: 20180827
  12. LACOSAMIDE. [Suspect]
     Active Substance: LACOSAMIDE
     Dosage: OVERDOSE
     Route: 048
     Dates: start: 20180827, end: 20180827
  13. LAMICTAL [Suspect]
     Active Substance: LAMOTRIGINE
     Indication: SIMPLE PARTIAL SEIZURES
     Dosage: 300 MG, ONCE DAILY (QD)
     Route: 048

REACTIONS (4)
  - Agitation [Fatal]
  - Toxicity to various agents [Fatal]
  - Gamma-glutamyltransferase increased [Recovered/Resolved]
  - Intentional overdose [Unknown]

NARRATIVE: CASE EVENT DATE: 20171018
